FAERS Safety Report 19918968 (Version 1)
Quarter: 2021Q4

REPORT INFORMATION
  Report Type: Spontaneous
  Country: GB (occurrence: GB)
  Receive Date: 20211005
  Receipt Date: 20211005
  Transmission Date: 20220304
  Serious: Yes (Life-Threatening, Other)
  Sender: FDA-Public Use
  Company Number: None

PATIENT
  Age: 61 Year
  Sex: Female
  Weight: 56 kg

DRUGS (13)
  1. ALGINATE [Concomitant]
     Indication: Product used for unknown indication
     Dosage: 10ML-20ML
     Dates: start: 20200928
  2. GLUCOPHAGE [Concomitant]
     Active Substance: METFORMIN HYDROCHLORIDE
     Indication: Product used for unknown indication
     Dosage: TAKE ONE DAILY THEN INCREASE GRADUALY TO 1 TO BE TAKEN FOUR TIMES DAILY
     Dates: start: 20210831
  3. QVAR [Concomitant]
     Active Substance: BECLOMETHASONE DIPROPIONATE
     Indication: Product used for unknown indication
     Dosage: CUMULATIVE DOSE TO FIRST REACTION: 2347.83333 (UNIT UNSPECIFIED)
     Dates: start: 20200214
  4. JARDIANCE [Suspect]
     Active Substance: EMPAGLIFLOZIN
     Indication: Product used for unknown indication
     Dosage: CUMULATIVE DOSE TO FIRST REACTION: 4948.95833 (UNITS UNSPECIFIED)
     Dates: start: 20210309
  5. ATORVASTATIN [Concomitant]
     Active Substance: ATORVASTATIN
     Indication: Product used for unknown indication
     Dosage: CUMULATIVE DOSE TO FIRST REACTION 2268.0 (UNIT UNSPECIFIED)
     Dates: start: 20150709
  6. COLESEVELAM HYDROCHLORIDE [Concomitant]
     Active Substance: COLESEVELAM HYDROCHLORIDE
     Indication: Product used for unknown indication
     Dosage: CUMULATIVE DOSE TO FIRST REACTION 207.0 (UNIT UNSPECIFIED)
     Dates: start: 20210716
  7. CHOLESTYRAMINE [Concomitant]
     Active Substance: CHOLESTYRAMINE
     Indication: Product used for unknown indication
     Dosage: GRADUALLY INCREASING TO ON...?CUMULATIVE DOSE TO FIRST DOSE  320.0 (UNIT UNSPECIFIED)
     Dates: start: 20210416, end: 20210716
  8. DEXAMETHASONE [Concomitant]
     Active Substance: DEXAMETHASONE
     Indication: Product used for unknown indication
     Dosage: AS PER NEUROLOGY?CUMULATIVE DOSE TO FIRST REACTION 40 (UNIT UNSPECIFIED)
     Dates: start: 20210903
  9. ESOMEPRAZOLE. [Concomitant]
     Active Substance: ESOMEPRAZOLE MAGNESIUM
     Indication: Abdominal distension
     Dosage: 1-2 PER DAY
     Dates: start: 20180914
  10. GLICLAZIDE [Concomitant]
     Active Substance: GLICLAZIDE
     Indication: Product used for unknown indication
     Dosage: CUMULATIVE DOSE TO FIRST REACTION 160 (UNIT UNSPECIFIED)
     Dates: start: 20210416
  11. DEXTROSE [Concomitant]
     Active Substance: DEXTROSE
     Indication: Product used for unknown indication
     Dosage: USE AS DIRECTED
     Dates: start: 20200218
  12. RAMIPRIL [Concomitant]
     Active Substance: RAMIPRIL
     Indication: Product used for unknown indication
     Dosage: CUMULATIVE DOSE TO FIRST REACTION 2268.0 (UNIT UNSPECIFIED)
     Dates: start: 20150709
  13. ALBUTEROL [Concomitant]
     Active Substance: ALBUTEROL
     Indication: Product used for unknown indication
     Dosage: WHEN REQUIRED?CUMULATIVE DOSE TO FIRST REACTION 4695.66666 (UNIT UNSPECIFIED)
     Dates: start: 20200214

REACTIONS (1)
  - Diabetic ketoacidosis [Recovered/Resolved]

NARRATIVE: CASE EVENT DATE: 20210923
